FAERS Safety Report 24818280 (Version 1)
Quarter: 2025Q1

REPORT INFORMATION
  Report Type: Spontaneous
  Country: FR (occurrence: FR)
  Receive Date: 20250108
  Receipt Date: 20250108
  Transmission Date: 20250409
  Serious: Yes (Hospitalization)
  Sender: AUROBINDO
  Company Number: FR-AFSSAPS-DJ2024001413

PATIENT
  Age: 40 Year
  Sex: Female
  Weight: 76 kg

DRUGS (1)
  1. TAMOXIFEN [Suspect]
     Active Substance: TAMOXIFEN
     Indication: Breast cancer
     Dosage: 20 MILLIGRAM, ONCE A DAY (20MG MORNING)
     Route: 048
     Dates: start: 202303, end: 20241202

REACTIONS (1)
  - Hepatic steatosis [Recovering/Resolving]

NARRATIVE: CASE EVENT DATE: 20241001
